FAERS Safety Report 8879584 (Version 2)
Quarter: 2012Q4

REPORT INFORMATION
  Report Type: 
  Country: JP (occurrence: JP)
  Receive Date: 20121031
  Receipt Date: 20121120
  Transmission Date: 20130627
  Serious: Yes (Other)
  Sender: FDA-Public Use
  Company Number: JP-OTSUKA-JP-2012-16665

PATIENT
  Age: 58 Year
  Sex: Male

DRUGS (2)
  1. PLETAAL [Suspect]
     Indication: CEREBRAL ARTERY EMBOLISM
     Dosage: 200 Mg milligram(s), daily dose
     Route: 048
  2. ASPIRIN [Concomitant]
     Dosage: UNK
     Route: 065

REACTIONS (5)
  - Carotid artery dissection [Unknown]
  - Carotid artery occlusion [Recovering/Resolving]
  - Hemiplegia [None]
  - Altered state of consciousness [None]
  - Condition aggravated [None]
